FAERS Safety Report 23384009 (Version 2)
Quarter: 2024Q1

REPORT INFORMATION
  Report Type: Spontaneous
  Country: NZ (occurrence: NZ)
  Receive Date: 20240109
  Receipt Date: 20240216
  Transmission Date: 20240409
  Serious: Yes (Other)
  Sender: FDA-Public Use
  Company Number: NZ-MYLANLABS-2023M1082189

PATIENT
  Age: 65 Year
  Sex: Female

DRUGS (21)
  1. CLOZARIL [Suspect]
     Active Substance: CLOZAPINE
     Indication: Schizophrenia
     Dosage: UNK
     Route: 048
     Dates: start: 20100630, end: 20240103
  2. CLOZARIL [Suspect]
     Active Substance: CLOZAPINE
     Dosage: UNK
     Route: 065
     Dates: start: 20240102, end: 20240105
  3. CLOZARIL [Suspect]
     Active Substance: CLOZAPINE
     Dosage: 325 MILLIGRAM, PM (NIGHT)
     Route: 048
     Dates: start: 20231206, end: 20231215
  4. CLOZARIL [Suspect]
     Active Substance: CLOZAPINE
     Dosage: 350 MILLIGRAM, PM(NIGHT)
     Route: 048
     Dates: start: 20231215, end: 20240103
  5. CLOZARIL [Suspect]
     Active Substance: CLOZAPINE
     Dosage: 300 MILLIGRAM, PM (N)
     Route: 065
     Dates: start: 20180405, end: 20190210
  6. CLOZARIL [Suspect]
     Active Substance: CLOZAPINE
     Dosage: 250 MILLIGRAM, PM (N)
     Route: 065
     Dates: start: 20190210, end: 20210204
  7. CLOZARIL [Suspect]
     Active Substance: CLOZAPINE
     Dosage: 300 MILLIGRAM, PM (N)
     Route: 065
     Dates: start: 20210205, end: 20210717
  8. CLOZARIL [Suspect]
     Active Substance: CLOZAPINE
     Dosage: 250 MILLIGRAM, PM (N)
     Route: 065
     Dates: start: 20210718, end: 20220301
  9. CLOZARIL [Suspect]
     Active Substance: CLOZAPINE
     Dosage: 300 MILLIGRAM, PM (N)
     Route: 065
     Dates: start: 20220302, end: 20220901
  10. CLOZARIL [Suspect]
     Active Substance: CLOZAPINE
     Dosage: 275 MILLIGRAM, PM (N), THEN INCREASE SLOWLY TO 300MG N.
     Route: 065
     Dates: start: 20220902, end: 20230125
  11. DOCUSATE [Concomitant]
     Active Substance: DOCUSATE
     Dosage: UNK
     Route: 065
  12. SENNA [Concomitant]
     Active Substance: SENNA LEAF\SENNOSIDES\SENNOSIDES A AND B
     Dosage: UNK
     Route: 065
  13. POLYETHYLENE GLYCOL 3350\POTASSIUM CHLORIDE\SODIUM BICARBONATE\SODIUM [Concomitant]
     Active Substance: POLYETHYLENE GLYCOL 3350\POTASSIUM CHLORIDE\SODIUM BICARBONATE\SODIUM CHLORIDE
     Dosage: UNK
     Route: 065
  14. CHOLECALCIFEROL [Concomitant]
     Active Substance: CHOLECALCIFEROL
     Dosage: 125 MILLIGRAM, MONTHLY
     Route: 048
  15. PALIPERIDONE [Concomitant]
     Active Substance: PALIPERIDONE
     Dosage: 75 MILLIGRAM, MONTHLY (Q4W)
     Route: 065
     Dates: start: 20180405, end: 20190209
  16. PALIPERIDONE [Concomitant]
     Active Substance: PALIPERIDONE
     Dosage: 100 MILLIGRAM, MONTHLY (Q4W)
     Route: 065
     Dates: start: 20190210, end: 20210204
  17. PALIPERIDONE [Concomitant]
     Active Substance: PALIPERIDONE
     Dosage: 50 MILLIGRAM, MONTHLY(Q4W)
     Route: 065
     Dates: start: 20210205, end: 20210717
  18. PALIPERIDONE [Concomitant]
     Active Substance: PALIPERIDONE
     Dosage: 75 MILLIGRAM, MONTHLY (Q4W)
     Route: 065
     Dates: start: 20210718, end: 20220301
  19. PALIPERIDONE [Concomitant]
     Active Substance: PALIPERIDONE
     Dosage: 50 MILLIGRAM, MONTHLY(Q4W)
     Route: 065
     Dates: start: 20220302, end: 20220901
  20. PALIPERIDONE [Concomitant]
     Active Substance: PALIPERIDONE
     Dosage: 75 MILLIGRAM, MONTHLY (Q4W)
     Route: 065
     Dates: start: 20220902, end: 20231202
  21. OLANZAPINE [Concomitant]
     Active Substance: OLANZAPINE
     Dosage: 300 MILLIGRAM, Q2W
     Route: 065
     Dates: start: 20190308, end: 20190410

REACTIONS (6)
  - Myocarditis [Recovered/Resolved]
  - Antipsychotic drug level decreased [Unknown]
  - Haemoglobin decreased [Unknown]
  - Neutrophil count increased [Unknown]
  - Dizziness postural [Unknown]
  - Fatigue [Unknown]

NARRATIVE: CASE EVENT DATE: 20230501
